FAERS Safety Report 7739208-6 (Version None)
Quarter: 2011Q3

REPORT INFORMATION
  Report Type: 
  Country: None (occurrence: None)
  Receive Date: 20110909
  Receipt Date: 20110906
  Transmission Date: 20111222
  Serious: No
  Sender: FDA-Public Use
  Company Number: US-PFIZER INC-2011208789

PATIENT
  Sex: Female
  Weight: 89.796 kg

DRUGS (5)
  1. NEURONTIN [Suspect]
     Indication: DEPRESSION
     Dosage: 300 MG, 4X/DAY
     Route: 048
     Dates: start: 20040101
  2. SYNTHROID [Concomitant]
     Indication: THYROID DISORDER
     Dosage: UNK
  3. GABAPENTIN [Suspect]
     Dosage: UNK
  4. CALCIUM [Concomitant]
     Dosage: UNK
  5. DIAZEPAM [Concomitant]
     Indication: SLEEP DISORDER
     Dosage: UNK, AS NEEDED

REACTIONS (3)
  - DEPRESSION [None]
  - DRUG DISPENSING ERROR [None]
  - DRUG INEFFECTIVE [None]
